FAERS Safety Report 16692955 (Version 1)
Quarter: 2019Q4

REPORT INFORMATION
  Report Type: Spontaneous
  Country: US (occurrence: US)
  Receive Date: 20190810
  Receipt Date: 20190810
  Transmission Date: 20200122
  Serious: Yes (Disabling)
  Sender: FDA-Public Use
  Company Number: None

PATIENT
  Age: 45 Year
  Sex: Female
  Weight: 48.15 kg

DRUGS (7)
  1. SUMATRIPTAN. [Concomitant]
     Active Substance: SUMATRIPTAN
  2. ADVIL [Concomitant]
     Active Substance: IBUPROFEN
  3. VIT D [Concomitant]
     Active Substance: VITAMIN D NOS
  4. AIMOVIG [Suspect]
     Active Substance: ERENUMAB-AOOE
     Indication: MIGRAINE
     Dosage: ?          QUANTITY:1 INJECTION(S);OTHER FREQUENCY:ONCE A MONTH;?
     Route: 030
     Dates: start: 20181115, end: 20190515
  5. B2 [Concomitant]
  6. CALCIUM [Concomitant]
     Active Substance: CALCIUM
  7. TYLENOL [Concomitant]
     Active Substance: ACETAMINOPHEN

REACTIONS (13)
  - Cognitive disorder [None]
  - Aphasia [None]
  - Feeling abnormal [None]
  - Osteoporosis [None]
  - Menstruation delayed [None]
  - Vision blurred [None]
  - Vertigo [None]
  - Abdominal pain upper [None]
  - Paraesthesia [None]
  - Fatigue [None]
  - Musculoskeletal stiffness [None]
  - Pelvic fracture [None]
  - Muscle spasms [None]

NARRATIVE: CASE EVENT DATE: 20190513
